FAERS Safety Report 24149850 (Version 1)
Quarter: 2024Q3

REPORT INFORMATION
  Report Type: Report from Study
  Country: CN (occurrence: CN)
  Receive Date: 20240730
  Receipt Date: 20240730
  Transmission Date: 20241016
  Serious: Yes (Death, Other)
  Sender: ROCHE
  Company Number: CN-ROCHE-10000031529

PATIENT
  Age: 42 Year
  Sex: Female

DRUGS (1)
  1. COLUMVI [Suspect]
     Active Substance: GLOFITAMAB-GXBM
     Indication: Diffuse large B-cell lymphoma
     Route: 042

REACTIONS (3)
  - Inflammation [Fatal]
  - Haemorrhage [Unknown]
  - Feeding disorder [Unknown]

NARRATIVE: CASE EVENT DATE: 20240101
